FAERS Safety Report 21141449 (Version 6)
Quarter: 2022Q4

REPORT INFORMATION
  Report Type: Spontaneous
  Country: US (occurrence: None)
  Receive Date: 20220728
  Receipt Date: 20221123
  Transmission Date: 20230112
  Serious: Yes (Hospitalization, Other)
  Sender: FDA-Public Use
  Company Number: US-Hikma Pharmaceuticals USA Inc.-US-H14001-22-01891

PATIENT
  Age: 60 Year
  Sex: Female
  Weight: 56.24 kg

DRUGS (10)
  1. FLUTICASONE PROPIONATE [Suspect]
     Active Substance: FLUTICASONE PROPIONATE
     Indication: Nasal congestion
     Route: 045
     Dates: start: 20220621, end: 20220621
  2. FLUTICASONE PROPIONATE [Suspect]
     Active Substance: FLUTICASONE PROPIONATE
     Indication: Upper-airway cough syndrome
  3. FLUTICASONE PROPIONATE [Suspect]
     Active Substance: FLUTICASONE PROPIONATE
     Indication: Eustachian tube disorder
  4. FLONASE ALLERGY RELIEF [Suspect]
     Active Substance: FLUTICASONE PROPIONATE
     Indication: Upper-airway cough syndrome
     Dosage: 2 SQUIRTS IN THE NOSTRILS
     Route: 065
     Dates: start: 20220621
  5. FLONASE ALLERGY RELIEF [Suspect]
     Active Substance: FLUTICASONE PROPIONATE
     Indication: Eustachian tube disorder
  6. DILANTIN [Concomitant]
     Active Substance: PHENYTOIN
     Indication: Product used for unknown indication
     Dosage: UNKNOWN
     Route: 065
     Dates: start: 1979
  7. PHENOBARBITAL [Concomitant]
     Active Substance: PHENOBARBITAL
     Indication: Product used for unknown indication
     Dosage: UNKNOWN
     Route: 065
     Dates: start: 1970
  8. CETIRIZINE [Concomitant]
     Active Substance: CETIRIZINE HYDROCHLORIDE
     Indication: Product used for unknown indication
     Route: 065
     Dates: start: 20220621
  9. DEXAMETHASONE [Concomitant]
     Active Substance: DEXAMETHASONE
     Indication: Product used for unknown indication
     Route: 048
     Dates: start: 20220621, end: 20220624
  10. DEXAMETHASONE [Concomitant]
     Active Substance: DEXAMETHASONE
     Route: 048

REACTIONS (32)
  - Scar [Not Recovered/Not Resolved]
  - Scab [Recovered/Resolved]
  - Blister [Recovered/Resolved]
  - Skin discolouration [Recovering/Resolving]
  - Inflammation [Recovered/Resolved]
  - Chemical burn [Recovered/Resolved]
  - Burning sensation [Recovered/Resolved]
  - Erythema [Unknown]
  - Dry skin [Unknown]
  - Lip swelling [Unknown]
  - Rash [Unknown]
  - Underdose [Unknown]
  - Dermatitis contact [Unknown]
  - Dermatitis atopic [Unknown]
  - Eczema [Unknown]
  - Psoriasis [Unknown]
  - Cellulitis [Unknown]
  - Abscess [Unknown]
  - Impetigo [Unknown]
  - Pain [Unknown]
  - Lip pain [Unknown]
  - Pruritus [Unknown]
  - Bronchitis [Unknown]
  - Chronic obstructive pulmonary disease [Unknown]
  - Cough [Unknown]
  - Wheezing [Unknown]
  - Upper respiratory tract infection [Unknown]
  - Ear infection [Unknown]
  - Dyspnoea [Unknown]
  - Breath sounds abnormal [Unknown]
  - Oedema mucosal [Unknown]
  - Tympanic membrane disorder [Unknown]

NARRATIVE: CASE EVENT DATE: 20220101
